FAERS Safety Report 8301495-3 (Version None)
Quarter: 2012Q2

REPORT INFORMATION
  Report Type: 
  Country: None (occurrence: None)
  Receive Date: 20120420
  Receipt Date: 20120417
  Transmission Date: 20120825
  Serious: Yes (Other)
  Sender: FDA-Public Use
  Company Number: PHEH2012US006243

PATIENT
  Sex: Female
  Weight: 57.6 kg

DRUGS (6)
  1. MOEXIPRIL HYDROCHLORIDE [Concomitant]
     Indication: HYPERTENSION
     Route: 048
  2. RECLAST [Suspect]
     Dosage: 5 MG, UNK
     Route: 042
     Dates: start: 20110218
  3. ZOLOFT [Concomitant]
     Indication: DEPRESSION
     Route: 048
  4. NIASPAN [Concomitant]
     Indication: LIPIDS INCREASED
     Route: 048
  5. LEVOXYL [Concomitant]
     Indication: HYPOTHYROIDISM
     Route: 048
  6. ZOCOR [Concomitant]
     Indication: LIPIDS INCREASED
     Route: 048

REACTIONS (2)
  - ORAL INFECTION [None]
  - OSTEONECROSIS OF JAW [None]
